FAERS Safety Report 5075529-6 (Version None)
Quarter: 2006Q3

REPORT INFORMATION
  Report Type: 
  Country: None (occurrence: None)
  Receive Date: 20060714
  Receipt Date: 20060321
  Transmission Date: 20061208
  Serious: No
  Sender: FDA-Public Use
  Company Number: 2006SP001195

PATIENT
  Age: 47 Year
  Sex: Male
  Weight: 136.0791 kg

DRUGS (3)
  1. LUNESTA [Suspect]
     Indication: INSOMNIA
     Dosage: 0.5 MG;1X;ORAL
     Route: 048
     Dates: start: 20060101, end: 20060101
  2. SINGULAIR [Concomitant]
  3. PROVENTIL [Concomitant]

REACTIONS (3)
  - DRY MOUTH [None]
  - FATIGUE [None]
  - NIGHTMARE [None]
